FAERS Safety Report 10213633 (Version 1)
Quarter: 2014Q2

REPORT INFORMATION
  Report Type: Spontaneous
  Country: US (occurrence: None)
  Receive Date: 20140530
  Receipt Date: 20140530
  Transmission Date: 20141212
  Serious: Yes (Death)
  Sender: FDA-Public Use
  Company Number: 2014US000946

PATIENT
  Age: 80 Year
  Sex: Male

DRUGS (2)
  1. ELIGARD [Suspect]
     Indication: PROSTATE CANCER
     Dates: start: 20110927, end: 20120314
  2. ELIGARD [Suspect]
     Indication: BLOOD TESTOSTERONE ABNORMAL
     Dates: start: 20110927, end: 20120314

REACTIONS (27)
  - Malignant neoplasm progression [None]
  - Unevaluable event [None]
  - Laceration [None]
  - Swelling [None]
  - Skin mass [None]
  - Sunburn [None]
  - Fall [None]
  - Balance disorder [None]
  - Hyperhidrosis [None]
  - Ageusia [None]
  - Oropharyngeal pain [None]
  - Hypoaesthesia [None]
  - Dysuria [None]
  - Arthralgia [None]
  - Headache [None]
  - Generalised erythema [None]
  - Pain [None]
  - Nodule [None]
  - Urinary retention [None]
  - Constipation [None]
  - Aphagia [None]
  - Gingival inflammation [None]
  - Ulcer [None]
  - Haematochezia [None]
  - Haemoglobin decreased [None]
  - Haematocrit decreased [None]
  - Night sweats [None]
